FAERS Safety Report 6608820 (Version 20)
Quarter: 2013Q4

REPORT INFORMATION
  Report Type: Spontaneous
  Country: US (occurrence: US)
  Receive Date: 20080407
  Receipt Date: 20131002
  Transmission Date: 20140711
  Serious: Yes (Hospitalization, Other)
  Sender: FDA-Public Use
  Company Number: PHEH2008US03152

PATIENT
  Sex: Female

DRUGS (12)
  1. AREDIA [Suspect]
     Route: 042
  2. ZOMETA [Suspect]
     Indication: METASTASES TO BONE
     Route: 042
  3. MORPHINE [Concomitant]
  4. METHADONE [Concomitant]
  5. CRESTOR [Concomitant]
  6. COMBIVENT [Concomitant]
  7. PROTONIX ^PHARMACIA^ [Concomitant]
  8. XANAX [Concomitant]
  9. AVINZA [Concomitant]
  10. DIFLUCAN [Concomitant]
  11. ZOFRAN [Concomitant]
  12. CHEMOTHERAPEUTICS [Concomitant]

REACTIONS (168)
  - Mental status changes [Unknown]
  - Confusional state [Unknown]
  - Hypophagia [Unknown]
  - Abdominal pain [Unknown]
  - Osteonecrosis of jaw [Unknown]
  - Pain [Unknown]
  - Infection [Unknown]
  - Scar [Unknown]
  - Emotional distress [Unknown]
  - Anxiety [Unknown]
  - Physical disability [Unknown]
  - Plasma cell myeloma [Unknown]
  - Diabetes mellitus [Unknown]
  - Jaw fracture [Unknown]
  - Bone loss [Unknown]
  - Arthritis [Unknown]
  - Depression [Unknown]
  - Cerebrovascular accident [Unknown]
  - Asthma [Unknown]
  - Neoplasm progression [Unknown]
  - Malignant neoplasm progression [Unknown]
  - Metastases to bone [Unknown]
  - Metastases to liver [Unknown]
  - Metastases to central nervous system [Unknown]
  - Metastases to spine [Unknown]
  - Lymphadenopathy [Unknown]
  - Breast mass [Unknown]
  - Pathological fracture [Unknown]
  - Diabetes mellitus inadequate control [Unknown]
  - Bronchitis [Unknown]
  - Chronic obstructive pulmonary disease [Unknown]
  - Large intestine polyp [Unknown]
  - Hiatus hernia [Unknown]
  - Oral candidiasis [Unknown]
  - Portal vein thrombosis [Unknown]
  - Productive cough [Unknown]
  - Respiratory tract infection [Unknown]
  - Otitis externa [Unknown]
  - Metastases to lung [Unknown]
  - Emphysema [Unknown]
  - Pelvic pain [Unknown]
  - Hepatic steatosis [Unknown]
  - Gastrooesophageal reflux disease [Unknown]
  - Headache [Unknown]
  - Fatigue [Unknown]
  - Dizziness [Unknown]
  - Nausea [Unknown]
  - Arthralgia [Unknown]
  - Back pain [Unknown]
  - Oedema peripheral [Unknown]
  - Diarrhoea [Unknown]
  - Musculoskeletal chest pain [Unknown]
  - Obesity [Unknown]
  - Dehydration [Unknown]
  - Decreased appetite [Unknown]
  - Pyrexia [Unknown]
  - Dyspnoea [Unknown]
  - Osteoporosis [Unknown]
  - Gait disturbance [Unknown]
  - Pneumonia [Unknown]
  - Fall [Unknown]
  - Femur fracture [Unknown]
  - Urinary tract infection [Unknown]
  - Colon cancer [Unknown]
  - Acetabulum fracture [Unknown]
  - Road traffic accident [Unknown]
  - Bone lesion [Unknown]
  - Osteolysis [Unknown]
  - Chest pain [Unknown]
  - Joint swelling [Unknown]
  - Nerve injury [Unknown]
  - Influenza [Unknown]
  - Osteomyelitis [Recovering/Resolving]
  - Hypertension [Unknown]
  - Tenderness [Unknown]
  - Paraesthesia [Unknown]
  - Exposed bone in jaw [Unknown]
  - Oral discharge [Unknown]
  - Wheezing [Unknown]
  - Delirium [Unknown]
  - Pancytopenia [Unknown]
  - Periodontal disease [Unknown]
  - Interstitial lung disease [Unknown]
  - Granuloma [Unknown]
  - Dyspepsia [Unknown]
  - Insomnia [Unknown]
  - Hepatitis [Unknown]
  - Hepatomegaly [Unknown]
  - Drug withdrawal syndrome [Unknown]
  - Convulsion [Unknown]
  - Uterine enlargement [Unknown]
  - Menometrorrhagia [Unknown]
  - Excessive granulation tissue [Unknown]
  - Dystrophic calcification [Unknown]
  - Inflammation [Unknown]
  - Actinomycosis [Unknown]
  - Bone pain [Unknown]
  - Proctalgia [Unknown]
  - Myocardial infarction [Unknown]
  - Spinal pain [Unknown]
  - Blood cholesterol increased [Unknown]
  - Hypoventilation [Unknown]
  - Osteosclerosis [Unknown]
  - Spinal disorder [Unknown]
  - Intervertebral disc degeneration [Unknown]
  - Uterine cancer [Unknown]
  - Second primary malignancy [Unknown]
  - Fibrocystic breast disease [Unknown]
  - Mass [Unknown]
  - Faecal incontinence [Unknown]
  - Vomiting [Unknown]
  - Bronchial hyperreactivity [Unknown]
  - Endometriosis [Unknown]
  - Abdominal distension [Unknown]
  - Abdominal neoplasm [Unknown]
  - Sinus disorder [Unknown]
  - Haemorrhoids [Unknown]
  - Anorectal discomfort [Unknown]
  - Vaginal haemorrhage [Unknown]
  - Eustachian tube dysfunction [Unknown]
  - Tinnitus [Unknown]
  - Rhinitis allergic [Unknown]
  - Discomfort [Unknown]
  - Alopecia [Unknown]
  - Aphthous stomatitis [Unknown]
  - Metastases to lymph nodes [Unknown]
  - Deep vein thrombosis [Unknown]
  - Device related infection [Unknown]
  - Haematemesis [Unknown]
  - Haematochezia [Unknown]
  - Gastrointestinal haemorrhage [Unknown]
  - Ear pain [Unknown]
  - Tympanic membrane hyperaemia [Unknown]
  - Pharyngeal erythema [Unknown]
  - Purulent discharge [Unknown]
  - Otitis media [Unknown]
  - Sleep apnoea syndrome [Unknown]
  - Hyperhidrosis [Unknown]
  - Uterine leiomyoma [Unknown]
  - Diplopia [Unknown]
  - Vision blurred [Unknown]
  - Abscess jaw [Unknown]
  - Bone swelling [Unknown]
  - Gingivitis [Unknown]
  - Tooth infection [Unknown]
  - Respiratory failure [Unknown]
  - Thrombocytopenia [Unknown]
  - Urinary incontinence [Unknown]
  - Bacterial vaginosis [Unknown]
  - Pneumothorax [Unknown]
  - Splenomegaly [Unknown]
  - Cardiac murmur [Unknown]
  - Speech disorder [Unknown]
  - Injury [Unknown]
  - Pelvic fracture [Unknown]
  - Neutropenia [Unknown]
  - Pyelonephritis [Unknown]
  - Soft tissue mass [Unknown]
  - Syncope [Unknown]
  - Amnesia [Unknown]
  - Hip fracture [Unknown]
  - Hypercalcaemia [Unknown]
  - Tachycardia [Unknown]
  - Respiratory acidosis [Unknown]
  - Hypovolaemia [Unknown]
  - Ascites [Unknown]
  - Colitis ulcerative [Unknown]
  - Muscle spasms [Unknown]
